FAERS Safety Report 23640768 (Version 1)
Quarter: 2024Q1

REPORT INFORMATION
  Report Type: Report from Study
  Country: CA (occurrence: CA)
  Receive Date: 20240318
  Receipt Date: 20240318
  Transmission Date: 20240409
  Serious: Yes (Other)
  Sender: FDA-Public Use
  Company Number: CA-ABBVIE-5680438

PATIENT
  Age: 48 Year
  Sex: Male

DRUGS (1)
  1. SKYRIZI [Suspect]
     Active Substance: RISANKIZUMAB-RZAA
     Indication: Crohn^s disease
     Route: 042
     Dates: start: 20231215

REACTIONS (4)
  - Gastric operation [Unknown]
  - Gastric operation [Unknown]
  - Gastric operation [Unknown]
  - Gastric operation [Unknown]

NARRATIVE: CASE EVENT DATE: 20240215
